FAERS Safety Report 23276718 (Version 1)
Quarter: 2023Q4

REPORT INFORMATION
  Report Type: Spontaneous
  Country: US (occurrence: US)
  Receive Date: 20231208
  Receipt Date: 20231208
  Transmission Date: 20240110
  Serious: No
  Sender: FDA-Public Use
  Company Number: US-AMERICAN REGENT INC-2023000659

PATIENT
  Age: 49 Year
  Sex: Female
  Weight: 56.417 kg

DRUGS (5)
  1. VENOFER [Suspect]
     Active Substance: IRON SUCROSE
     Indication: Iron deficiency anaemia
     Dosage: 200 MILLIGRAM, IN 100 ML NS
     Route: 042
     Dates: start: 20220614, end: 20220614
  2. VENOFER [Suspect]
     Active Substance: IRON SUCROSE
     Dosage: 200 MILLIGRAM, IN 100 ML NS
     Route: 042
     Dates: start: 20220621, end: 20220621
  3. VENOFER [Suspect]
     Active Substance: IRON SUCROSE
     Dosage: 200 MILLIGRAM,  IN 100 ML NS
     Route: 042
     Dates: start: 20220628, end: 20220628
  4. VENOFER [Suspect]
     Active Substance: IRON SUCROSE
     Dosage: 200 MILLIGRAM,  IN 100 ML NS
     Route: 042
     Dates: start: 20220705, end: 20220705
  5. VENOFER [Suspect]
     Active Substance: IRON SUCROSE
     Dosage: 200 MILLIGRAM, IN 100 ML NS
     Route: 042
     Dates: start: 20220712, end: 20220712

REACTIONS (3)
  - Limb discomfort [Unknown]
  - Incorrect product administration duration [Recovered/Resolved]
  - Inappropriate schedule of product administration [Recovered/Resolved]

NARRATIVE: CASE EVENT DATE: 20220614
